FAERS Safety Report 9383855 (Version 2)
Quarter: 2013Q3

REPORT INFORMATION
  Report Type: Spontaneous
  Country: FR (occurrence: FR)
  Receive Date: 20130704
  Receipt Date: 20130710
  Transmission Date: 20140515
  Serious: Yes (Other)
  Sender: FDA-Public Use
  Company Number: FR-MERCK-1307FRA001642

PATIENT
  Age: 52 Year
  Sex: Female

DRUGS (1)
  1. AERIUS [Suspect]
     Dosage: 20 DF,  ONCE
     Route: 048
     Dates: start: 20130630, end: 20130630

REACTIONS (3)
  - Suicide attempt [Recovered/Resolved]
  - Intentional overdose [Unknown]
  - Fall [Recovered/Resolved]
